FAERS Safety Report 9952757 (Version 1)
Quarter: 2014Q1

REPORT INFORMATION
  Report Type: Spontaneous
  Country: US (occurrence: US)
  Receive Date: 20140304
  Receipt Date: 20140304
  Transmission Date: 20141002
  Serious: Yes (Hospitalization)
  Sender: FDA-Public Use
  Company Number: PHEH2014US004203

PATIENT
  Sex: Female

DRUGS (9)
  1. GILENYA [Suspect]
     Dosage: 1 DF, QD
     Route: 048
  2. GILENYA [Suspect]
     Dosage: 1 DF, QD
     Route: 048
  3. D3 [Concomitant]
  4. LEVOTHYROXINE [Concomitant]
     Dosage: 50 UG, UNK
  5. LYRICA [Concomitant]
     Dosage: 75 MG, UNK
  6. TOPIRAMATE [Concomitant]
     Dosage: 100 MG, UNK
  7. DULOXETINE [Concomitant]
     Dosage: 60 MG, UNK
  8. ALBUTEROL [Concomitant]
  9. NITROFURANTOIN [Concomitant]

REACTIONS (2)
  - Dysphagia [Unknown]
  - Urinary tract infection [Unknown]
